FAERS Safety Report 6170204-9 (Version None)
Quarter: 2009Q2

REPORT INFORMATION
  Report Type: 
  Country: None (occurrence: None)
  Receive Date: 20090428
  Receipt Date: 20090415
  Transmission Date: 20091009
  Serious: Yes (Other)
  Sender: FDA-Public Use
  Company Number: PHHY2009JP14235

PATIENT
  Age: 53 Year
  Sex: Female

DRUGS (4)
  1. SANDOSTATIN [Suspect]
     Indication: CUSHING'S SYNDROME
     Dosage: 100 UG/DAY
     Route: 058
  2. SANDOSTATIN LAR [Suspect]
     Indication: CUSHING'S SYNDROME
     Dosage: 10 MG, QMO
     Route: 030
  3. SANDOSTATIN LAR [Suspect]
     Dosage: 30 MG, QMO
     Route: 030
  4. METOPIRONE [Concomitant]
     Indication: CUSHING'S SYNDROME

REACTIONS (5)
  - BLOOD CORTICOTROPHIN INCREASED [None]
  - BLOOD GASTRIN INCREASED [None]
  - DRUG INEFFECTIVE [None]
  - TACHYPHYLAXIS [None]
  - THERAPEUTIC EMBOLISATION [None]
